FAERS Safety Report 6188871-2 (Version None)
Quarter: 2009Q2

REPORT INFORMATION
  Report Type: 
  Country: None (occurrence: None)
  Receive Date: 20090513
  Receipt Date: 20090505
  Transmission Date: 20091009
  Serious: Yes (Other)
  Sender: FDA-Public Use
  Company Number: PHHY2009GB17340

PATIENT
  Sex: Male

DRUGS (2)
  1. VOLTAREN-XR [Suspect]
     Indication: MOTOR NEURONE DISEASE
     Dosage: 50 MG, TID
     Route: 048
  2. VOLTAREN [Suspect]
     Indication: MOTOR NEURONE DISEASE
     Dosage: 50 MG IN AM, 100 MG IN PM

REACTIONS (1)
  - DYSPHAGIA [None]
